FAERS Safety Report 12378625 (Version 5)
Quarter: 2017Q1

REPORT INFORMATION
  Report Type: Spontaneous
  Country: AR (occurrence: AR)
  Receive Date: 20160517
  Receipt Date: 20170125
  Transmission Date: 20170428
  Serious: Yes (Hospitalization, Other)
  Sender: FDA-Public Use
  Company Number: AR-TAKEDA-2016MPI004330

PATIENT
  Age: 73 Year
  Sex: Female
  Weight: 67 kg

DRUGS (37)
  1. TRAMADOL. [Concomitant]
     Active Substance: TRAMADOL
     Indication: PAIN
     Dosage: UNK, TID
     Route: 048
     Dates: start: 20160322
  2. ENALAPRIL [Concomitant]
     Active Substance: ENALAPRIL
     Indication: HYPERTENSION
     Dosage: 10 MG, BID
     Route: 048
     Dates: start: 20160413
  3. MANITOL [Concomitant]
     Indication: CONSTIPATION
     Dosage: 10 MG, QD
     Route: 048
     Dates: start: 20160414, end: 20160415
  4. BISACODILO [Concomitant]
     Indication: CONSTIPATION
     Dosage: UNK, QD
     Route: 048
     Dates: start: 20160415
  5. VELCADE [Suspect]
     Active Substance: BORTEZOMIB
     Dosage: 1.7 MG, UNK
     Route: 058
     Dates: start: 20160513
  6. VELCADE [Suspect]
     Active Substance: BORTEZOMIB
     Dosage: 1.7 MG, UNK
     Route: 058
     Dates: start: 20160610
  7. AGAROL LAXATIVE [Concomitant]
     Indication: CONSTIPATION
     Dosage: 10 ML, QD
     Route: 048
     Dates: start: 2005
  8. PARACETAMOL [Concomitant]
     Active Substance: ACETAMINOPHEN
     Indication: PAIN
     Dosage: UNK, TID
     Route: 048
     Dates: start: 20160401
  9. PAMIDRONATE [Concomitant]
     Active Substance: PAMIDRONATE DISODIUM
     Indication: PLASMA CELL MYELOMA
     Dosage: 100 MG, MONTHLY
     Route: 048
     Dates: start: 20160328
  10. LACTULON                           /00160501/ [Concomitant]
     Indication: CONSTIPATION
     Dosage: 10 ML, UNK
     Route: 048
     Dates: start: 20160422
  11. CALCIUM [Concomitant]
     Active Substance: CALCIUM
     Indication: PLASMA CELL MYELOMA
     Dosage: UNK, QD
     Route: 048
     Dates: start: 20160422
  12. PREDNISONE. [Suspect]
     Active Substance: PREDNISONE
     Indication: PLASMA CELL MYELOMA
     Dosage: 2.3 MG, UNK
     Route: 048
     Dates: start: 20160423, end: 20160425
  13. DARATUMUMAB [Suspect]
     Active Substance: DARATUMUMAB
     Indication: PLASMA CELL MYELOMA
     Dosage: 1072 MG, UNK
     Route: 042
     Dates: start: 20160422, end: 20160422
  14. OMEPRAZOLE. [Concomitant]
     Active Substance: OMEPRAZOLE
     Indication: GASTROINTESTINAL DISORDER THERAPY
     Dosage: 20 MG, BID
     Route: 048
     Dates: start: 20160322
  15. NEUPOGEN [Concomitant]
     Active Substance: FILGRASTIM
     Indication: PROPHYLAXIS
     Dosage: 300 ?G, UNK
     Route: 042
     Dates: start: 20160427, end: 20160427
  16. VELCADE [Suspect]
     Active Substance: BORTEZOMIB
     Dosage: 2.3 MG, UNK
     Route: 058
     Dates: start: 20160422, end: 20160425
  17. ENOXAPARIN [Concomitant]
     Active Substance: ENOXAPARIN
     Indication: THROMBOSIS PROPHYLAXIS
     Dosage: 40 MG, QD
     Route: 058
     Dates: start: 20160412, end: 20160416
  18. NEUPOGEN [Concomitant]
     Active Substance: FILGRASTIM
     Dosage: 300 ?G, UNK
     Route: 042
     Dates: start: 20160501, end: 20160501
  19. ZOMETA [Concomitant]
     Active Substance: ZOLEDRONIC ACID
     Indication: PLASMA CELL MYELOMA
     Dosage: 4 MG, MONTHLY
     Route: 042
     Dates: start: 20160504
  20. DILTIAZEM. [Concomitant]
     Active Substance: DILTIAZEM
     Indication: HYPERTENSION
     Dosage: UNK, BID
     Route: 048
  21. RIVOTRIL [Concomitant]
     Active Substance: CLONAZEPAM
     Indication: INSOMNIA
     Dosage: 2 MG, QD
     Route: 048
     Dates: start: 2000
  22. AMLODIPINE [Concomitant]
     Active Substance: AMLODIPINE BESYLATE
     Indication: HYPERTENSION
     Dosage: 10 MG, UNK
     Route: 048
     Dates: start: 20160322
  23. VELCADE [Suspect]
     Active Substance: BORTEZOMIB
     Indication: PLASMA CELL MYELOMA
     Dosage: UNK
     Route: 058
  24. ACICLOVIR [Concomitant]
     Active Substance: ACYCLOVIR
     Indication: ANTIVIRAL PROPHYLAXIS
     Dosage: 500 MG, UNK
     Route: 048
     Dates: start: 20160421
  25. MORFINE [Concomitant]
     Active Substance: MORPHINE
     Indication: BACK PAIN
     Dosage: UNK
     Route: 048
     Dates: start: 20160414, end: 20160415
  26. CEFTRIAXONE. [Concomitant]
     Active Substance: CEFTRIAXONE
     Indication: INFECTION
     Dosage: 2 G, UNK
     Route: 042
     Dates: start: 20160426, end: 20160426
  27. VELCADE [Suspect]
     Active Substance: BORTEZOMIB
     Dosage: 1.8 MG, UNK
     Route: 058
     Dates: start: 20160624
  28. VELCADE [Suspect]
     Active Substance: BORTEZOMIB
     Dosage: 1.8 MG, UNK
     Route: 058
     Dates: start: 20170106
  29. MELPHALAN [Suspect]
     Active Substance: MELPHALAN
     Indication: PLASMA CELL MYELOMA
     Dosage: 16 MG, UNK
     Route: 048
     Dates: start: 20160422, end: 20160425
  30. MORPHINE                           /00036302/ [Concomitant]
     Active Substance: MORPHINE
     Indication: BACK PAIN
     Dosage: 20 MG, UNK
     Route: 042
     Dates: start: 20160412, end: 20160413
  31. DEXAMETHASONE. [Concomitant]
     Active Substance: DEXAMETHASONE
     Indication: BACK PAIN
     Dosage: 40 MG, QD
     Route: 042
     Dates: start: 20160412, end: 20160414
  32. FLUCONAZOLE. [Concomitant]
     Active Substance: FLUCONAZOLE
     Indication: ANTIFUNGAL PROPHYLAXIS
     Dosage: 200 MG, 1/WEEK
     Route: 048
     Dates: start: 20160412, end: 20160420
  33. ENOXAPARIN [Concomitant]
     Active Substance: ENOXAPARIN
     Dosage: 40 MG, UNK
     Route: 058
     Dates: start: 20160428, end: 20160503
  34. MORFINE [Concomitant]
     Active Substance: MORPHINE
     Dosage: UNK
     Route: 048
     Dates: start: 20160416, end: 20160419
  35. METOCLOPRAMIDE. [Concomitant]
     Active Substance: METOCLOPRAMIDE
     Indication: PROPHYLAXIS OF NAUSEA AND VOMITING
     Dosage: UNK
     Route: 048
     Dates: start: 20160401
  36. FUROSEMIDE. [Concomitant]
     Active Substance: FUROSEMIDE
     Indication: FLUID OVERLOAD
     Dosage: 20 MG, UNK
     Route: 042
     Dates: start: 20160501, end: 20160501
  37. PIPERACILLIN/TAZOBACTAM [Concomitant]
     Active Substance: PIPERACILLIN SODIUM\TAZOBACTAM SODIUM
     Indication: INFECTION
     Dosage: 4.5 G, TID
     Route: 042
     Dates: start: 20160426, end: 20160504

REACTIONS (4)
  - Blood alkaline phosphatase increased [Unknown]
  - Neutropenia [Unknown]
  - Fluid overload [Unknown]
  - Infection [Recovered/Resolved]

NARRATIVE: CASE EVENT DATE: 20160426
